FAERS Safety Report 16540006 (Version 2)
Quarter: 2019Q3

REPORT INFORMATION
  Report Type: Report from Study
  Country: IT (occurrence: IT)
  Receive Date: 20190708
  Receipt Date: 20190906
  Transmission Date: 20191004
  Serious: Yes (Other)
  Sender: FDA-Public Use
  Company Number: IT-MYLANLABS-2019M1061337

PATIENT
  Age: 59 Year
  Sex: Female

DRUGS (3)
  1. QUETIAPINE. [Suspect]
     Active Substance: QUETIAPINE
     Indication: BIPOLAR DISORDER
     Dosage: 200 MILLIGRAM, TOTAL
     Route: 048
     Dates: start: 20181110, end: 20181110
  2. EN [Suspect]
     Active Substance: DELORAZEPAM
     Indication: ANXIETY
     Dosage: 10 DOSAGE FORM, TOTAL
     Route: 048
     Dates: start: 20181110, end: 20181110
  3. CIRCADIN [Suspect]
     Active Substance: MELATONIN
     Indication: INSOMNIA
     Dosage: 8 DOSAGE FORM, TOTAL
     Route: 048
     Dates: start: 20181110, end: 20181110

REACTIONS (2)
  - Drug abuse [Recovering/Resolving]
  - Sopor [Recovering/Resolving]

NARRATIVE: CASE EVENT DATE: 20181110
